FAERS Safety Report 8044894-X (Version None)
Quarter: 2012Q1

REPORT INFORMATION
  Report Type: 
  Country: None (occurrence: None)
  Receive Date: 20120112
  Receipt Date: 20111021
  Transmission Date: 20120608
  Serious: No
  Sender: FDA-Public Use
  Company Number: DL2011-0819

PATIENT
  Age: 27 Year
  Sex: Female

DRUGS (3)
  1. MIFEPRISTONE (MIFEPREX) [Suspect]
     Indication: ABORTION INDUCED
     Dosage: 200 MG, ORAL
     Route: 048
     Dates: start: 20110824
  2. MISOPROSTOL [Suspect]
     Dosage: 800 MCG, VAGINAL 600 MCG
     Route: 067
     Dates: start: 20110928
  3. MISOPROSTOL [Suspect]
     Dosage: 800 MCG, VAGINAL 600 MCG
     Route: 067
     Dates: start: 20110826

REACTIONS (5)
  - ABORTION INCOMPLETE [None]
  - HAEMORRHAGE [None]
  - MUSCLE SPASMS [None]
  - ENDOMETRITIS [None]
  - PAIN [None]
